FAERS Safety Report 23088627 (Version 2)
Quarter: 2023Q4

REPORT INFORMATION
  Report Type: Spontaneous
  Country: TN (occurrence: TN)
  Receive Date: 20231020
  Receipt Date: 20231031
  Transmission Date: 20240109
  Serious: Yes (Other)
  Sender: FDA-Public Use
  Company Number: TN-STRIDES ARCOLAB LIMITED-2023SP015819

PATIENT
  Age: 21 Year
  Sex: Male

DRUGS (5)
  1. PREDNISOLONE [Suspect]
     Active Substance: PREDNISOLONE
     Indication: Eosinophilic pneumonia chronic
     Dosage: 1 MILLIGRAM/KILOGRAM, QD; PER DAY (HIGH DOSE)
     Route: 048
  2. PREDNISOLONE [Suspect]
     Active Substance: PREDNISOLONE
     Dosage: UNK, LATER, IT WAS TAPERED OVER 6 MONTHS
     Route: 048
  3. PREDNISOLONE [Suspect]
     Active Substance: PREDNISOLONE
     Dosage: UNK, STARTED AGAIN
     Route: 065
  4. DEXAMETHASONE [Suspect]
     Active Substance: DEXAMETHASONE
     Indication: Eosinophilic pneumonia chronic
     Dosage: 20 MILLIGRAM, QD (HIGH DOSE), FOR 3 DAYS
     Route: 048
  5. DEXAMETHASONE [Suspect]
     Active Substance: DEXAMETHASONE
     Dosage: UNK, STARTED AGAIN
     Route: 065

REACTIONS (3)
  - Tendon rupture [Unknown]
  - Muscle atrophy [Unknown]
  - Depression [Unknown]
